FAERS Safety Report 16565884 (Version 1)
Quarter: 2019Q3

REPORT INFORMATION
  Report Type: Spontaneous
  Country: US (occurrence: US)
  Receive Date: 20190712
  Receipt Date: 20190712
  Transmission Date: 20191004
  Serious: No
  Sender: FDA-Public Use
  Company Number: US-PFIZER INC-2019189281

PATIENT
  Age: 72 Year
  Sex: Female
  Weight: 91.17 kg

DRUGS (1)
  1. LYRICA [Suspect]
     Active Substance: PREGABALIN
     Indication: ARTHRITIS
     Dosage: 100 MG, TWICE A DAY (100MG IN MORNING AND 100 AT NIGHT)
     Route: 048
     Dates: start: 201704

REACTIONS (2)
  - Off label use [Unknown]
  - Drug effective for unapproved indication [Unknown]

NARRATIVE: CASE EVENT DATE: 201704
